FAERS Safety Report 20567723 (Version 6)
Quarter: 2023Q2

REPORT INFORMATION
  Report Type: Report from Study
  Country: MX (occurrence: None)
  Receive Date: 20220308
  Receipt Date: 20230517
  Transmission Date: 20230721
  Serious: Yes (Life-Threatening)
  Sender: FDA-Public Use
  Company Number: MX-ROCHE-3020843

PATIENT
  Age: 68 Year
  Sex: Female
  Weight: 68 kg

DRUGS (7)
  1. ATEZOLIZUMAB [Suspect]
     Active Substance: ATEZOLIZUMAB
     Indication: Triple negative breast cancer
     Dosage: DATE OF MOST RECENT DOSE OF ATEZOLIZUMAB PRIOR TO PHOTOSENSIBILITY : 29/NOV/2021?DATE OF MOST RECENT
     Route: 041
     Dates: start: 20210913
  2. PACLITAXEL [Suspect]
     Active Substance: PACLITAXEL
     Indication: Triple negative breast cancer
     Dosage: DATE OF MOST RECENT DOSE OF PACLITAXEL PRIOR TO PHOTOSENSIBILITY ONSET :  29/NOV/2021 AT 840 MG?DOSE
     Route: 042
     Dates: start: 20210913
  3. DOXORUBICIN [Suspect]
     Active Substance: DOXORUBICIN
     Indication: Triple negative breast cancer
     Dosage: DOSE OF LAST DOXORUBICIN ADMINISTERED PRIOR TO AE ONSET 103 MG
     Route: 042
     Dates: start: 20211213
  4. DOXORUBICIN [Suspect]
     Active Substance: DOXORUBICIN
     Dosage: DOSE OF LAST DOXORUBICIN ADMINISTERED PRIOR TO AE ONSET 78 MG: 14/MAR/2022
     Route: 042
     Dates: start: 20211213
  5. CYCLOPHOSPHAMIDE [Suspect]
     Active Substance: CYCLOPHOSPHAMIDE
     Indication: Triple negative breast cancer
     Dosage: DATE OF MOST RECENT DOSE OF CYCLOPHOSPHAMIDE PRIOR TO AE ONSET13/DEC/2021??DATE OF MOST RECENT DOSE
     Route: 042
     Dates: start: 20211213
  6. FILGRASTIM [Suspect]
     Active Substance: FILGRASTIM
     Indication: Triple negative breast cancer
     Dosage: CYCLE 4?VISIT 2
     Route: 058
     Dates: start: 20220110, end: 20220114
  7. FILGRASTIM [Suspect]
     Active Substance: FILGRASTIM
     Dosage: CYCLE 5?VISIT 1
     Route: 058
     Dates: start: 20220221, end: 20220225

REACTIONS (3)
  - Neutropenia [Recovered/Resolved]
  - Photosensitivity reaction [Recovering/Resolving]
  - Neutropenia [Recovered/Resolved]

NARRATIVE: CASE EVENT DATE: 20211206
